FAERS Safety Report 4484008-6 (Version None)
Quarter: 2004Q4

REPORT INFORMATION
  Report Type: 
  Country: None (occurrence: None)
  Receive Date: 20041021
  Receipt Date: 20041006
  Transmission Date: 20050328
  Serious: Yes (Death)
  Sender: FDA-Public Use
  Company Number: 2004AL000882

PATIENT
  Age: 21 Year
  Sex: Female

DRUGS (4)
  1. ACETAMINOPHEN [Suspect]
     Indication: DISCOMFORT
     Dosage: PO
     Route: 048
  2. ACETAMINOPHEN [Suspect]
     Indication: DISCOMFORT
     Dosage: PO
     Route: 048
  3. ACETAMINOPHEN/ DIPHENHYDRAMINE [Suspect]
     Indication: DISCOMFORT
     Dosage: PO
     Route: 048
  4. ETHANOL [Suspect]
     Indication: DISCOMFORT
     Dosage: PO
     Route: 048

REACTIONS (34)
  - ACTIVATED PARTIAL THROMBOPLASTIN TIME PROLONGED [None]
  - ALANINE AMINOTRANSFERASE INCREASED [None]
  - ANION GAP INCREASED [None]
  - ASPARTATE AMINOTRANSFERASE INCREASED [None]
  - ASTERIXIS [None]
  - BLOOD ALCOHOL INCREASED [None]
  - BLOOD BICARBONATE DECREASED [None]
  - BLOOD BILIRUBIN INCREASED [None]
  - BRAIN HERNIATION [None]
  - CARDIAC DISORDER [None]
  - CHEST DISCOMFORT [None]
  - DISORIENTATION [None]
  - DYSPNOEA [None]
  - HAEMATEMESIS [None]
  - HAEMODIALYSIS [None]
  - HEART RATE INCREASED [None]
  - HEPATIC NECROSIS [None]
  - HEPATIC STEATOSIS [None]
  - HYPOCALCAEMIA [None]
  - HYPOGLYCAEMIA [None]
  - HYPOTENSION [None]
  - INTERNATIONAL NORMALISED RATIO INCREASED [None]
  - INTRACRANIAL PRESSURE INCREASED [None]
  - MENTAL STATUS CHANGES [None]
  - MULTIPLE DRUG OVERDOSE [None]
  - MUSCULOSKELETAL DISCOMFORT [None]
  - OLIGURIA [None]
  - PETECHIAE [None]
  - PROTHROMBIN TIME PROLONGED [None]
  - RENAL FAILURE [None]
  - THERAPY NON-RESPONDER [None]
  - THROMBOCYTOPENIA [None]
  - VOMITING [None]
  - WHITE BLOOD CELL COUNT DECREASED [None]
